FAERS Safety Report 22005468 (Version 1)
Quarter: 2023Q1

REPORT INFORMATION
  Report Type: Spontaneous
  Country: US (occurrence: None)
  Receive Date: 20230216
  Receipt Date: 20230216
  Transmission Date: 20230418
  Serious: Yes (unspecified)
  Sender: FDA-Public Use
  Company Number: None

PATIENT
  Age: 33 Year
  Sex: Female
  Weight: 108 kg

DRUGS (5)
  1. MEDROL [Suspect]
     Active Substance: METHYLPREDNISOLONE
     Indication: Bronchitis
     Dosage: OTHER FREQUENCY : TAPERED;?
     Route: 048
     Dates: start: 20221226, end: 20221228
  2. MEDROL [Suspect]
     Active Substance: METHYLPREDNISOLONE
     Indication: Laryngitis
  3. PROZAC [Concomitant]
     Active Substance: FLUOXETINE HYDROCHLORIDE
  4. Declofinac [Concomitant]
  5. VITAMINS [Concomitant]
     Active Substance: VITAMINS

REACTIONS (11)
  - Erythema [None]
  - Erythema [None]
  - Cold sweat [None]
  - Tremor [None]
  - Gastrooesophageal reflux disease [None]
  - Weight decreased [None]
  - Nausea [None]
  - Anxiety [None]
  - Oesophageal pain [None]
  - Dysphagia [None]
  - Panic attack [None]

NARRATIVE: CASE EVENT DATE: 20221228
